FAERS Safety Report 8435088-4 (Version None)
Quarter: 2012Q2

REPORT INFORMATION
  Report Type: 
  Country: None (occurrence: None)
  Receive Date: 20120614
  Receipt Date: 20120608
  Transmission Date: 20120825
  Serious: Yes (Hospitalization, Other)
  Sender: FDA-Public Use
  Company Number: PHEH2012US000645

PATIENT
  Sex: Female

DRUGS (1)
  1. RECLAST [Suspect]
     Indication: OSTEOPOROSIS
     Dosage: UNK UKN, UNK
     Route: 042
     Dates: start: 20111229

REACTIONS (11)
  - CHEST PAIN [None]
  - INFLUENZA LIKE ILLNESS [None]
  - PAIN IN JAW [None]
  - CHEST DISCOMFORT [None]
  - HEART RATE INCREASED [None]
  - HEADACHE [None]
  - MYALGIA [None]
  - BLOOD PRESSURE INCREASED [None]
  - ELECTROCARDIOGRAM ST-T SEGMENT ELEVATION [None]
  - HYPERTENSIVE CRISIS [None]
  - LIVER FUNCTION TEST ABNORMAL [None]
